FAERS Safety Report 6593155-4 (Version None)
Quarter: 2010Q1

REPORT INFORMATION
  Report Type: 
  Country: None (occurrence: None)
  Receive Date: 20100222
  Receipt Date: 20100210
  Transmission Date: 20100710
  Serious: Yes (Disabling)
  Sender: FDA-Public Use
  Company Number: PHEH2010US02087

PATIENT
  Sex: Female
  Weight: 100 kg

DRUGS (10)
  1. RECLAST [Suspect]
     Indication: OSTEOPOROSIS
     Dosage: 5 MG, UNK
     Route: 042
     Dates: start: 20100111
  2. TRAMADOL HYDROCHLORIDE [Concomitant]
     Dosage: 25MG TO 50MG UP TO QID
     Dates: start: 20100126
  3. ASPIRIN [Concomitant]
     Dosage: UNK, QD
     Dates: start: 20090218
  4. HYDROCHLOROTHIAZIDE [Concomitant]
     Dosage: 25 MG, QD
     Dates: start: 20040603
  5. VITAMIN B-12 [Concomitant]
     Dates: start: 20040603
  6. NEXIUM [Concomitant]
     Dosage: 20 MG, UNK
     Dates: start: 20040603
  7. CALTRATE + D                       /00944201/ [Concomitant]
     Dates: start: 20040603
  8. TYLENOL-500 [Concomitant]
     Dosage: 500 MG, UNK
     Dates: start: 20091118
  9. ZOCOR [Concomitant]
     Dosage: 20 MG, QHS
     Dates: start: 20090618
  10. VITAMIN D [Concomitant]
     Dosage: 50000 IU, QMO
     Dates: start: 20090318

REACTIONS (5)
  - ARTHRALGIA [None]
  - CHONDROCALCINOSIS PYROPHOSPHATE [None]
  - JOINT EFFUSION [None]
  - PAIN [None]
  - SYNOVIAL FLUID WHITE BLOOD CELLS POSITIVE [None]
